FAERS Safety Report 23909759 (Version 4)
Quarter: 2024Q3

REPORT INFORMATION
  Report Type: Spontaneous
  Country: ES (occurrence: ES)
  Receive Date: 20240528
  Receipt Date: 20240705
  Transmission Date: 20241016
  Serious: Yes (Hospitalization, Other)
  Sender: NOVARTIS
  Company Number: ES-002147023-NVSC2024ES110773

PATIENT
  Age: 56 Year
  Sex: Female

DRUGS (7)
  1. RIBOCICLIB [Suspect]
     Active Substance: RIBOCICLIB
     Indication: Breast cancer metastatic
     Dosage: 600 MG, QD (PER DAY FOR 3 WEEKS EVERY 28 DAYS)
     Route: 065
     Dates: start: 20230904, end: 20240115
  2. LETROZOLE [Suspect]
     Active Substance: LETROZOLE
     Indication: Breast cancer metastatic
     Dosage: 1 DOSAGE FORM, QD (1 TABLET EVERY 24 HOURS CONTINUOUSLY WITHOUT INTERRUPTION)
     Route: 065
     Dates: start: 20230904
  3. PALBOCICLIB [Concomitant]
     Active Substance: PALBOCICLIB
     Indication: Product used for unknown indication
     Dosage: UNK
     Route: 065
  4. FOLIC ACID [Concomitant]
     Active Substance: FOLIC ACID
     Indication: Product used for unknown indication
     Dosage: 0.4 MG, QD (1 TABLET EVERY 24 HOURS)
     Route: 048
  5. CYANOCOBALAMIN [Concomitant]
     Active Substance: CYANOCOBALAMIN
     Indication: Product used for unknown indication
     Dosage: 0.002 MG, QD (1 TABLET EVERY 24 HOURS)
     Route: 048
  6. IBUPROFEN [Concomitant]
     Active Substance: IBUPROFEN
     Indication: Product used for unknown indication
     Dosage: 600 MG (1 TABLET EVERY 8 HOURS)
     Route: 048
  7. OMEPRAZOLE [Concomitant]
     Active Substance: OMEPRAZOLE
     Indication: Product used for unknown indication
     Dosage: 20 MG, QD (1 CAPSULE EVERY 24 HOURS)
     Route: 048

REACTIONS (5)
  - Organising pneumonia [Recovered/Resolved]
  - Pyrexia [Unknown]
  - Pneumonitis [Recovering/Resolving]
  - Dyspnoea at rest [Recovering/Resolving]
  - Cough [Unknown]

NARRATIVE: CASE EVENT DATE: 20231101
